FAERS Safety Report 9189436 (Version 1)
Quarter: 2013Q1

REPORT INFORMATION
  Report Type: Spontaneous
  Country: PT (occurrence: PT)
  Receive Date: 20130326
  Receipt Date: 20130326
  Transmission Date: 20140127
  Serious: Yes (Death)
  Sender: FDA-Public Use
  Company Number: PHHY2013PT028481

PATIENT
  Age: 42 Year
  Sex: Female

DRUGS (1)
  1. EXJADE [Suspect]
     Indication: APLASTIC ANAEMIA
     Dosage: 1500 MG, UNK
     Dates: start: 20110212

REACTIONS (3)
  - Peritoneal haemorrhage [Fatal]
  - Haemorrhagic disorder [Fatal]
  - Infection [Fatal]
